FAERS Safety Report 13201094 (Version 1)
Quarter: 2017Q1

REPORT INFORMATION
  Report Type: Other
  Country: US (occurrence: US)
  Receive Date: 20170209
  Receipt Date: 20170209
  Transmission Date: 20170428
  Serious: Yes (Other)
  Sender: FDA-Public Use
  Company Number: US-GLENMARK PHARMACEUTICALS INC, USA.-2016GMK024066

PATIENT

DRUGS (10)
  1. CLONAZEPAM. [Concomitant]
     Active Substance: CLONAZEPAM
     Indication: PANIC ATTACK
  2. LITHIUM CARBONATE. [Suspect]
     Active Substance: LITHIUM CARBONATE
     Indication: BIPOLAR DISORDER
     Dosage: 900 MG, UNK
     Route: 048
     Dates: start: 20160512, end: 201608
  3. RISPERIDONE. [Concomitant]
     Active Substance: RISPERIDONE
     Indication: BIPOLAR DISORDER
     Dosage: UNK
     Route: 048
  4. CLONAZEPAM. [Concomitant]
     Active Substance: CLONAZEPAM
     Indication: ANXIETY
     Dosage: 1 MG, UNK
     Route: 048
     Dates: start: 20160707
  5. LITHIUM CARBONATE. [Suspect]
     Active Substance: LITHIUM CARBONATE
     Dosage: 3 DF, QD (AT NIGHT BEFORE GOING TO BED)
     Route: 048
     Dates: start: 20160727, end: 20160806
  6. PROGESTERONE MICRONIZED/ETHINYL ESTRADIOL [Concomitant]
     Indication: HORMONE THERAPY
     Dosage: 100 MG, UNK
     Route: 048
  7. LITHIUM CARBONATE. [Suspect]
     Active Substance: LITHIUM CARBONATE
     Dosage: 300 MG, BID
     Route: 048
     Dates: start: 20160805
  8. LITHIUM CARBONATE. [Suspect]
     Active Substance: LITHIUM CARBONATE
     Dosage: 300 MG, UNK
     Route: 048
  9. LOPERAMIDE [Concomitant]
     Active Substance: LOPERAMIDE
     Indication: GASTROINTESTINAL DISORDER
     Dosage: UNK
     Route: 048
  10. LEUPROLIDE ACETATE. [Concomitant]
     Active Substance: LEUPROLIDE ACETATE
     Indication: HORMONE THERAPY
     Dosage: 7.5MG/MONTHLY
     Route: 023

REACTIONS (17)
  - Stress [Recovered/Resolved]
  - Diarrhoea [Recovered/Resolved]
  - Confusional state [Recovered/Resolved]
  - Intentional product use issue [Unknown]
  - Tremor [Recovered/Resolved]
  - Nausea [Recovered/Resolved]
  - Somnolence [Recovered/Resolved]
  - Product substitution issue [Unknown]
  - Product formulation issue [Unknown]
  - Toxicity to various agents [Recovered/Resolved]
  - Chest pain [Recovered/Resolved]
  - Amnesia [Recovered/Resolved]
  - Malaise [Recovered/Resolved]
  - Vomiting [Recovered/Resolved]
  - Drug ineffective [Unknown]
  - Accidental overdose [Unknown]
  - Dizziness [Unknown]

NARRATIVE: CASE EVENT DATE: 20160728
